APPROVED DRUG PRODUCT: NEBIVOLOL HYDROCHLORIDE
Active Ingredient: NEBIVOLOL HYDROCHLORIDE
Strength: EQ 20MG BASE
Dosage Form/Route: TABLET;ORAL
Application: A212661 | Product #004 | TE Code: AB
Applicant: MACLEODS PHARMACEUTICALS LTD
Approved: Jan 28, 2025 | RLD: No | RS: No | Type: RX